FAERS Safety Report 5036090-5 (Version None)
Quarter: 2006Q2

REPORT INFORMATION
  Report Type: 
  Country: None (occurrence: None)
  Receive Date: 20060526
  Receipt Date: 20060323
  Transmission Date: 20061013
  Serious: No
  Sender: FDA-Public Use
  Company Number: 223395

PATIENT
  Age: 38 Year
  Sex: Male
  Weight: 77.2 kg

DRUGS (4)
  1. RAPTIVA [Suspect]
     Indication: PSORIASIS
     Dosage: 0.8 ML, 1/WEEK, SUBCUTANEOUS
     Route: 058
     Dates: start: 20060210
  2. INSULIN (SLIDING SCALE) (INSULIN) [Concomitant]
  3. COZAAR [Concomitant]
  4. TOPICAL CREAM (DERMATOLOGIC AGENT NOS) [Concomitant]

REACTIONS (1)
  - ARTHRALGIA [None]
